FAERS Safety Report 21012135 (Version 1)
Quarter: 2022Q2

REPORT INFORMATION
  Report Type: Spontaneous
  Country: SE (occurrence: SE)
  Receive Date: 20220627
  Receipt Date: 20220627
  Transmission Date: 20220721
  Serious: Yes (Other)
  Sender: FDA-Public Use
  Company Number: 22_00019286(0)

PATIENT
  Age: 9 Year
  Sex: Female
  Weight: 48 kg

DRUGS (1)
  1. DEXMEDETOMIDINE HYDROCHLORIDE [Suspect]
     Active Substance: DEXMEDETOMIDINE HYDROCHLORIDE
     Indication: Sedative therapy
     Dosage: 100 MICROGRAMS/ ML SINGLE DOSE ADMINISTERED BY HEALTHCARE PROFESSIONALS
     Route: 045
     Dates: start: 20220112, end: 20220112

REACTIONS (6)
  - Syncope [Recovered/Resolved]
  - Orthostatic hypotension [Recovered/Resolved]
  - Respiratory arrest [Recovered/Resolved]
  - Headache [Recovered/Resolved]
  - Product administered to patient of inappropriate age [Recovered/Resolved]
  - Product use issue [Recovered/Resolved]

NARRATIVE: CASE EVENT DATE: 20220112
